FAERS Safety Report 6908768-7 (Version None)
Quarter: 2010Q3

REPORT INFORMATION
  Report Type: 
  Country: None (occurrence: None)
  Receive Date: 20100805
  Receipt Date: 20100726
  Transmission Date: 20110219
  Serious: Yes (Other)
  Sender: FDA-Public Use
  Company Number: A0868171A

PATIENT
  Age: 58 Year
  Sex: Female

DRUGS (10)
  1. FLONASE [Suspect]
     Dosage: 2SPR TWICE PER DAY
     Route: 045
     Dates: start: 20080101, end: 20080101
  2. NASONEX [Suspect]
     Dosage: 2SPR TWICE PER DAY
     Route: 045
     Dates: start: 20080101, end: 20080101
  3. WARFARIN [Concomitant]
  4. COREG [Concomitant]
  5. DIGOXIN [Concomitant]
  6. COZAAR [Concomitant]
  7. CELEXA [Concomitant]
  8. UNSPECIFIED MEDICATION [Concomitant]
  9. AMBIEN [Concomitant]
  10. POTASSIUM [Concomitant]

REACTIONS (2)
  - ANOSMIA [None]
  - EPISTAXIS [None]
